FAERS Safety Report 6335901-0 (Version None)
Quarter: 2009Q3

REPORT INFORMATION
  Report Type: 
  Country: None (occurrence: None)
  Receive Date: 20090901
  Receipt Date: 20070907
  Transmission Date: 20100115
  Serious: Yes (Other)
  Sender: FDA-Public Use
  Company Number: US-ASTRAZENECA-2007UW25294

PATIENT
  Age: 17629 Day
  Sex: Female
  Weight: 75.7 kg

DRUGS (19)
  1. SEROQUEL [Suspect]
     Dosage: STARTED WITH 25 MG
     Route: 048
     Dates: start: 20001206
  2. SEROQUEL [Suspect]
     Route: 048
     Dates: start: 20020919
  3. SEROQUEL [Suspect]
     Route: 048
     Dates: start: 20030220
  4. SEROQUEL [Suspect]
     Route: 048
     Dates: start: 20060611
  5. ZYPREXA [Concomitant]
  6. LITHIUM CARBONATE [Concomitant]
     Dates: start: 20000223, end: 20010117
  7. TEGRETOL [Concomitant]
     Dosage: 100 MG-400 MG
     Route: 048
     Dates: start: 20060611
  8. TOPAMAX [Concomitant]
     Dosage: 100 MG-200 MG
     Dates: start: 20020918
  9. LEXAPRO [Concomitant]
     Dates: start: 20041203
  10. REQUIP [Concomitant]
     Dates: start: 20060611
  11. GLUCOPHAGE [Concomitant]
     Dosage: 500 MG-1000 MG
     Dates: start: 20060611
  12. ATENOLOL [Concomitant]
     Dosage: 50 MG-100 MG
     Dates: start: 20020918
  13. TRICOR [Concomitant]
     Dates: start: 20020918
  14. MAXZIDE [Concomitant]
     Dates: start: 20020220
  15. NEXIUM [Concomitant]
     Indication: GASTROOESOPHAGEAL REFLUX DISEASE
     Dates: start: 20020918
  16. NEXIUM [Concomitant]
     Indication: HYPERTRIGLYCERIDAEMIA
     Dates: start: 20020918
  17. CELEXA [Concomitant]
     Route: 048
     Dates: start: 20020919
  18. PROTONIX [Concomitant]
     Route: 048
     Dates: start: 20020220
  19. RISPERDAL [Concomitant]

REACTIONS (3)
  - DIABETES MELLITUS [None]
  - NEUROPATHY PERIPHERAL [None]
  - TYPE 2 DIABETES MELLITUS [None]
